FAERS Safety Report 7117189-6 (Version None)
Quarter: 2010Q4

REPORT INFORMATION
  Report Type: 
  Country: None (occurrence: None)
  Receive Date: 20101115
  Receipt Date: 20101102
  Transmission Date: 20110411
  Serious: Yes (Other)
  Sender: FDA-Public Use
  Company Number: ACO_20014_2010

PATIENT
  Age: 72 Year
  Sex: Female

DRUGS (16)
  1. AMPYRA [Suspect]
     Indication: PRODUCT USED FOR UNKNOWN INDICATION
     Dosage: 10 MG, BID, ORAL
     Route: 048
     Dates: start: 20100914, end: 20100925
  2. COPAXONE [Concomitant]
  3. SYMMETREL [Concomitant]
  4. SERTRALINE (SERTRALINE) [Concomitant]
  5. LEVOTHYROXINE SODIUM [Concomitant]
  6. AVAPRO [Concomitant]
  7. SULFAMETHOXAZOLE [Concomitant]
  8. LIPITOR [Concomitant]
  9. EVISTA [Concomitant]
  10. ALENDRONATE SODIUM [Concomitant]
  11. GARLIC (ALLIUM SATIVUM) [Concomitant]
  12. IRON (IRON) [Concomitant]
  13. ASPIRIN [Concomitant]
  14. AMOXICILLIN [Concomitant]
  15. CALCIUM (CALCIUM) [Concomitant]
  16. MULTIVITAMIN [Concomitant]

REACTIONS (5)
  - BLOOD PRESSURE INCREASED [None]
  - CONVULSION [None]
  - FEELING ABNORMAL [None]
  - LOSS OF CONSCIOUSNESS [None]
  - MALAISE [None]
